FAERS Safety Report 15784926 (Version 3)
Quarter: 2019Q1

REPORT INFORMATION
  Report Type: Spontaneous
  Country: US (occurrence: US)
  Receive Date: 20190103
  Receipt Date: 20190223
  Transmission Date: 20190417
  Serious: Yes (Other)
  Sender: FDA-Public Use
  Company Number: US-TEVA-2018-US-993315

PATIENT
  Sex: Male

DRUGS (1)
  1. ACTAVIS CLONAZEPAM [Suspect]
     Active Substance: CLONAZEPAM
     Dosage: ONLY TAKING 0.5 MG IN THE MORNING, 0.5 MG IN THE AFTERNOON, AND A FULL 1 MG TABLET AT NIGHT BEFORE B
     Route: 065

REACTIONS (10)
  - Neoplasm malignant [Unknown]
  - Product substitution issue [Unknown]
  - Drug ineffective [Unknown]
  - Tinnitus [Unknown]
  - Cranial nerve injury [Unknown]
  - Dizziness [Unknown]
  - Musculoskeletal stiffness [Unknown]
  - Therapeutic response unexpected [Unknown]
  - Wrong technique in product usage process [Unknown]
  - Anxiety [Unknown]
